FAERS Safety Report 8196443-3 (Version None)
Quarter: 2012Q1

REPORT INFORMATION
  Report Type: 
  Country: None (occurrence: None)
  Receive Date: 20120309
  Receipt Date: 20120227
  Transmission Date: 20120608
  Serious: Yes (Hospitalization)
  Sender: FDA-Public Use
  Company Number: US-US-EMD SERONO, INC.-7115855

PATIENT
  Sex: Male
  Weight: 84 kg

DRUGS (7)
  1. TRUVADA [Concomitant]
     Indication: LENTIVIRUS TEST POSITIVE
  2. PRAVASTATIN [Concomitant]
     Indication: BLOOD CHOLESTEROL INCREASED
  3. EGRIFTA [Suspect]
     Indication: LIPODYSTROPHY ACQUIRED
     Route: 058
     Dates: start: 20110501, end: 20110501
  4. METFORMIN HCL [Concomitant]
     Indication: DIABETES MELLITUS
  5. VIRAMUNE [Concomitant]
     Indication: LENTIVIRUS TEST POSITIVE
  6. METOPROLOL SUCCINATE [Concomitant]
     Indication: HYPERTENSION
  7. NORVASC [Concomitant]
     Indication: HYPERTENSION

REACTIONS (1)
  - COLORECTAL CANCER [None]
